FAERS Safety Report 21663821 (Version 1)
Quarter: 2022Q4

REPORT INFORMATION
  Report Type: Report from Study
  Country: US (occurrence: US)
  Receive Date: 20221130
  Receipt Date: 20221130
  Transmission Date: 20230112
  Serious: Yes (Hospitalization)
  Sender: FDA-Public Use
  Company Number: US-TAKEDA-US201611806

PATIENT
  Age: 57 Year
  Sex: Male
  Weight: 74.7 kg

DRUGS (51)
  1. TEDUGLUTIDE [Suspect]
     Active Substance: TEDUGLUTIDE
     Indication: Short-bowel syndrome
     Dosage: 3.25 MILLIGRAM
     Route: 058
     Dates: start: 20150825
  2. TEDUGLUTIDE [Suspect]
     Active Substance: TEDUGLUTIDE
     Indication: Short-bowel syndrome
     Dosage: 3.25 MILLIGRAM
     Route: 058
     Dates: start: 20150825
  3. TEDUGLUTIDE [Suspect]
     Active Substance: TEDUGLUTIDE
     Indication: Short-bowel syndrome
     Dosage: 3.25 MILLIGRAM
     Route: 058
     Dates: start: 20150825
  4. TEDUGLUTIDE [Suspect]
     Active Substance: TEDUGLUTIDE
     Indication: Short-bowel syndrome
     Dosage: 3.25 MILLIGRAM
     Route: 058
     Dates: start: 20150825
  5. TEDUGLUTIDE [Suspect]
     Active Substance: TEDUGLUTIDE
     Dosage: 3.25 MILLIGRAM, QD
     Route: 058
     Dates: start: 20140715, end: 20150825
  6. TEDUGLUTIDE [Suspect]
     Active Substance: TEDUGLUTIDE
     Dosage: 3.25 MILLIGRAM, QD
     Route: 058
     Dates: start: 20140715, end: 20150825
  7. TEDUGLUTIDE [Suspect]
     Active Substance: TEDUGLUTIDE
     Dosage: 3.25 MILLIGRAM, QD
     Route: 058
     Dates: start: 20140715, end: 20150825
  8. TEDUGLUTIDE [Suspect]
     Active Substance: TEDUGLUTIDE
     Dosage: 3.25 MILLIGRAM, QD
     Route: 058
     Dates: start: 20140715, end: 20150825
  9. CLINDAMYCIN [Concomitant]
     Active Substance: CLINDAMYCIN
     Indication: Prophylaxis
     Dosage: 150 MG, 2X/DAY:BID
     Route: 048
     Dates: start: 20150825
  10. OXYCODONE [Concomitant]
     Active Substance: OXYCODONE
     Indication: Gout
     Dosage: 5 MG, OTHER (ONCE)
     Route: 048
     Dates: start: 20150409, end: 20150409
  11. OXYCODONE [Concomitant]
     Active Substance: OXYCODONE
     Indication: Asthma prophylaxis
     Dosage: 5 MG, AS REQ^D
     Route: 048
     Dates: start: 20150427, end: 20150428
  12. OXYCODONE [Concomitant]
     Active Substance: OXYCODONE
     Indication: Obstructive sleep apnoea syndrome
     Dosage: 5 MG, AS REQ^D
     Route: 048
     Dates: start: 20150825
  13. HYDRALAZINE [Concomitant]
     Active Substance: HYDRALAZINE HYDROCHLORIDE
     Indication: Hypertension
     Dosage: 25 MG, 3X/DAY:TID
     Route: 048
     Dates: start: 20150527, end: 20150812
  14. HYDRALAZINE [Concomitant]
     Active Substance: HYDRALAZINE HYDROCHLORIDE
     Dosage: 50 MG, 3X/DAY:TID
     Route: 048
     Dates: start: 20150812
  15. PROMETHAZINE [Concomitant]
     Active Substance: PROMETHAZINE HYDROCHLORIDE
     Indication: Accidental overdose
     Dosage: 12.5 MG, AS REQ^D
     Route: 048
     Dates: start: 20131130
  16. PROMETHAZINE [Concomitant]
     Active Substance: PROMETHAZINE HYDROCHLORIDE
     Indication: Nausea
     Dosage: 25 MG, 1X/DAY:QD
     Route: 048
     Dates: start: 20150711, end: 20150711
  17. BECLOMETHASONE [Concomitant]
     Active Substance: BECLOMETHASONE
     Indication: Asthma
     Dosage: TWO SPRAY, 2X/DAY:BID, INHALED
     Route: 065
     Dates: start: 20140925, end: 20150118
  18. BECLOMETHASONE [Concomitant]
     Active Substance: BECLOMETHASONE
     Indication: Asthma prophylaxis
     Dosage: 4 PUFFS, 2X/DAY:BID, INHALED
     Route: 065
     Dates: start: 20150118
  19. FLUTICASONE [Concomitant]
     Active Substance: FLUTICASONE
     Indication: Rhinitis allergic
     Dosage: 50 ?G, 1X/DAY:QD (INHALED)
     Route: 065
  20. INSULIN LISPRO [Concomitant]
     Active Substance: INSULIN LISPRO
     Indication: Type 2 diabetes mellitus
     Dosage: TWO UNITS, 1X/DAY:QD
     Route: 058
  21. MELATONIN [Concomitant]
     Active Substance: MELATONIN
     Indication: Insomnia
     Dosage: 3 MG, AS REQ^D
     Route: 048
  22. LEVOTHYROXINE [Concomitant]
     Active Substance: LEVOTHYROXINE
     Indication: Hypothyroidism
     Dosage: 100 ?G, 1X/DAY:QD
     Route: 048
  23. FLAGYL [Concomitant]
     Active Substance: METRONIDAZOLE\METRONIDAZOLE HYDROCHLORIDE
     Indication: Gastrointestinal bacterial overgrowth
     Dosage: 250 MG, 3X/DAY:TID
     Route: 048
  24. VITAMINS [Concomitant]
     Active Substance: VITAMINS
     Indication: Vitamin supplementation
     Dosage: 1 DF, 1X/DAY:QD
     Route: 048
  25. ALLOPURINOL [Concomitant]
     Active Substance: ALLOPURINOL
     Indication: Gout
     Dosage: 100 MG, 1X/DAY:QD
     Route: 048
     Dates: start: 20140318
  26. ACETAMINOPHEN [Concomitant]
     Active Substance: ACETAMINOPHEN
     Indication: Pain
     Dosage: 325 MG, AS REQ^D
     Route: 048
  27. ACETAMINOPHEN [Concomitant]
     Active Substance: ACETAMINOPHEN
     Indication: Asthma prophylaxis
     Dosage: 650 MG, OTHER, ONCE
     Route: 048
     Dates: start: 20150409, end: 20150409
  28. ACETAMINOPHEN [Concomitant]
     Active Substance: ACETAMINOPHEN
     Indication: Obstructive sleep apnoea syndrome
     Dosage: 650 MG, OTHER (Q6HOURS)
     Route: 048
     Dates: start: 20150427, end: 20150428
  29. METRONIDAZOLE [Concomitant]
     Active Substance: METRONIDAZOLE
     Indication: Gastrointestinal bacterial overgrowth
     Dosage: 250 MG, 3X/DAY:TID
     Route: 048
     Dates: end: 20150210
  30. METRONIDAZOLE [Concomitant]
     Active Substance: METRONIDAZOLE
     Dosage: 250 MG, 2X/DAY:BID
     Route: 048
     Dates: start: 20150518
  31. OMEPRAZOLE [Concomitant]
     Active Substance: OMEPRAZOLE
     Indication: Abdominal pain
     Dosage: 20 MG, 1X/DAY:QD
     Route: 048
     Dates: start: 20140211
  32. SIMETHICONE (DIMETHICONE) [Concomitant]
     Active Substance: DIMETHICONE
     Indication: Flatulence
     Dosage: 80 MG, AS REQ^D
     Route: 048
     Dates: start: 20120906
  33. ASPIRIN [Concomitant]
     Active Substance: ASPIRIN
     Indication: Obstructive sleep apnoea syndrome
     Dosage: 325 MG, OTHER (ONCE)
     Route: 048
     Dates: start: 20150423, end: 20150423
  34. ASPIRIN [Concomitant]
     Active Substance: ASPIRIN
     Dosage: 81 MG, 1X/DAY:QD
     Route: 048
     Dates: start: 20150425
  35. ATORVASTATIN [Concomitant]
     Active Substance: ATORVASTATIN
     Indication: Obstructive sleep apnoea syndrome
     Dosage: 40 MG, 1X/DAY:QD
     Route: 048
     Dates: start: 20150425
  36. FUROSEMIDE [Concomitant]
     Active Substance: FUROSEMIDE
     Indication: Obstructive sleep apnoea syndrome
     Dosage: 20 MG, 1X/DAY:QD
     Route: 042
     Dates: start: 20150423, end: 20150423
  37. FUROSEMIDE [Concomitant]
     Active Substance: FUROSEMIDE
     Dosage: 40 MG, 1X/DAY:QD
     Route: 042
     Dates: start: 20150425, end: 20150426
  38. FUROSEMIDE [Concomitant]
     Active Substance: FUROSEMIDE
     Dosage: 80 MG, 1X/DAY:QD
     Route: 048
     Dates: start: 20150427, end: 20150427
  39. FUROSEMIDE [Concomitant]
     Active Substance: FUROSEMIDE
     Dosage: 40 MG, AS REQ^D
     Route: 048
     Dates: start: 20150527
  40. GABAPENTIN [Concomitant]
     Active Substance: GABAPENTIN
     Indication: Obstructive sleep apnoea syndrome
     Dosage: 100 MG, 1X/DAY:QD
     Route: 048
     Dates: start: 20150403, end: 20150423
  41. GABAPENTIN [Concomitant]
     Active Substance: GABAPENTIN
     Dosage: 300 MG, 1X/DAY:QD
     Route: 048
     Dates: start: 20150424
  42. LANTUS [Concomitant]
     Active Substance: INSULIN GLARGINE
     Indication: Obstructive sleep apnoea syndrome
     Dosage: 15 UNITS, 1X/DAY:QD
     Route: 058
     Dates: start: 20150423, end: 20150608
  43. LANTUS [Concomitant]
     Active Substance: INSULIN GLARGINE
     Indication: Diabetes mellitus
     Dosage: 20 UNK, 1X/DAY:QD
     Route: 058
     Dates: start: 20150608
  44. LIDOCAINE [Concomitant]
     Active Substance: LIDOCAINE
     Indication: Obstructive sleep apnoea syndrome
     Dosage: 700 MG, 1X/DAY:QD
     Route: 061
     Dates: start: 20150428, end: 20150429
  45. LIDOCAINE [Concomitant]
     Active Substance: LIDOCAINE
     Indication: Osteoarthritis
     Dosage: 1 UNK, 1X/DAY:QD
     Route: 061
     Dates: start: 20150515
  46. RUBIDIUM CHLORIDE [Concomitant]
     Active Substance: RUBIDIUM CHLORIDE
     Indication: Obstructive sleep apnoea syndrome
     Dosage: 40 DF, 2X/DAY:BID
     Route: 042
     Dates: start: 20150429, end: 20150429
  47. METOPROLOL SUCCINATE [Concomitant]
     Active Substance: METOPROLOL SUCCINATE
     Indication: Obstructive sleep apnoea syndrome
     Dosage: 50 MG, 1X/DAY:QD
     Route: 048
     Dates: start: 20150429
  48. SINGULAIR [Concomitant]
     Active Substance: MONTELUKAST SODIUM
     Indication: Rhinitis allergic
     Dosage: 10 MG, 1X/DAY:QD
     Route: 048
     Dates: start: 20150515
  49. SODIUM CHLORIDE [Concomitant]
     Active Substance: SODIUM CHLORIDE
     Indication: Rhinitis allergic
     Dosage: 2 GTT, OTHER (Q4HOURS), INHALED
     Route: 065
     Dates: start: 20150515
  50. DOXYCYCLINE [Concomitant]
     Active Substance: DOXYCYCLINE
     Indication: Gastrointestinal bacterial overgrowth
     Dosage: 100 MG, 2X/DAY:BID
     Route: 048
     Dates: start: 20150526
  51. DICYCLOMINE [Concomitant]
     Active Substance: DICYCLOMINE HYDROCHLORIDE
     Indication: Abdominal pain
     Dosage: 10 MG, AS REQ^D
     Route: 048
     Dates: start: 20150711

REACTIONS (1)
  - Medical device site pain [Recovered/Resolved]

NARRATIVE: CASE EVENT DATE: 20160620
